FAERS Safety Report 8870434 (Version 1)
Quarter: 2012Q4

REPORT INFORMATION
  Report Type: 
  Country: US (occurrence: US)
  Receive Date: 20121026
  Receipt Date: 20121026
  Transmission Date: 20130627
  Serious: No
  Sender: FDA-Public Use
  Company Number: US-AMGEN-USASP2012043528

PATIENT
  Age: 43 Year
  Sex: Female

DRUGS (7)
  1. ENBREL [Suspect]
     Indication: PRODUCT USED FOR UNKNOWN INDICATION
     Dosage: 50 mg/ml, qwk
     Route: 058
  2. PREDNISONE [Concomitant]
     Dosage: 1 mg, UNK
  3. ACETAMINOPHEN [Concomitant]
     Dosage: 500 mg, UNK
  4. IBUPROFEN [Concomitant]
     Dosage: 200 mg, UNK
  5. TUMS                               /00751519/ [Concomitant]
     Dosage: 500 mg, UNK
  6. FERROUS SULFATE [Concomitant]
     Dosage: 324 mg, UNK
  7. VITAMIN D                          /00318501/ [Concomitant]
     Dosage: 400 UNK, UNK

REACTIONS (1)
  - Drug ineffective [Unknown]
